FAERS Safety Report 4910640-9 (Version None)
Quarter: 2006Q1

REPORT INFORMATION
  Report Type: 
  Country: None (occurrence: None)
  Receive Date: 20060214
  Receipt Date: 20051108
  Transmission Date: 20060701
  Serious: Yes (Hospitalization, Disabling, Other)
  Sender: FDA-Public Use
  Company Number: PHBS2005ES16610

PATIENT
  Age: 78 Year
  Sex: Male

DRUGS (1)
  1. LESCOL [Suspect]
     Dosage: 80 MG, UNK
     Route: 048

REACTIONS (6)
  - ANOREXIA [None]
  - BLOOD CREATINE PHOSPHOKINASE INCREASED [None]
  - HEPATIC NEOPLASM [None]
  - MALAISE [None]
  - MYALGIA [None]
  - PANCREATIC NEOPLASM [None]
